FAERS Safety Report 9562559 (Version 3)
Quarter: 2013Q4

REPORT INFORMATION
  Report Type: Spontaneous
  Country: AR (occurrence: AR)
  Receive Date: 20130927
  Receipt Date: 20131204
  Transmission Date: 20140711
  Serious: Yes (Other)
  Sender: FDA-Public Use
  Company Number: AR-PFIZER INC-2013273873

PATIENT
  Age: 77 Year
  Sex: Male

DRUGS (1)
  1. INLYTA [Suspect]
     Indication: RENAL CANCER METASTATIC
     Dosage: 5 MG, UNK
     Route: 065
     Dates: start: 20130816

REACTIONS (5)
  - Pneumonia [Recovering/Resolving]
  - Depressed level of consciousness [Recovered/Resolved]
  - Convulsion [Recovered/Resolved]
  - Syncope [Recovering/Resolving]
  - Bronchial disorder [Recovering/Resolving]
